FAERS Safety Report 24154126 (Version 1)
Quarter: 2024Q3

REPORT INFORMATION
  Report Type: Spontaneous
  Country: US (occurrence: US)
  Receive Date: 20240730
  Receipt Date: 20240730
  Transmission Date: 20241017
  Serious: No
  Sender: ELI LILLY AND CO
  Company Number: US-ELI_LILLY_AND_COMPANY-US202407013867

PATIENT
  Sex: Female

DRUGS (2)
  1. HUMULIN N [Suspect]
     Active Substance: INSULIN HUMAN
     Indication: Product used for unknown indication
     Dosage: UNK UNK, UNKNOWN
     Route: 058
  2. HUMALOG [Suspect]
     Active Substance: INSULIN LISPRO
     Indication: Product used for unknown indication
     Dosage: 6 U, UNKNOWN
     Route: 058
     Dates: start: 2023

REACTIONS (5)
  - Weight decreased [Unknown]
  - Injection site injury [Unknown]
  - Blood glucose abnormal [Recovered/Resolved]
  - Injection site induration [Not Recovered/Not Resolved]
  - Therapeutic response shortened [Unknown]
